FAERS Safety Report 24217220 (Version 1)
Quarter: 2024Q3

REPORT INFORMATION
  Report Type: Report from Study
  Country: EG (occurrence: EG)
  Receive Date: 20240816
  Receipt Date: 20240816
  Transmission Date: 20241016
  Serious: No
  Sender: SANDOZ
  Company Number: EG-SANDOZ-SDZ2023EG030260

PATIENT
  Age: 13 Year
  Sex: Female
  Weight: 40 kg

DRUGS (3)
  1. OMNITROPE [Suspect]
     Active Substance: SOMATROPIN
     Dosage: 1 MG/DAY
     Route: 058
     Dates: start: 20221226, end: 20230916
  2. HYDROFERRIN [Concomitant]
     Indication: Iron deficiency
     Dosage: 1 DROPPER/ DAY
     Route: 048
     Dates: start: 202212
  3. OCTOZINC [Concomitant]
     Indication: Supplementation therapy
     Dosage: 1 CAP/ DAY
     Route: 048
     Dates: start: 202212

REACTIONS (5)
  - Drug dose omission by device [Unknown]
  - Wrong technique in product usage process [Unknown]
  - Product preparation error [Unknown]
  - Needle issue [Unknown]
  - Device mechanical issue [Unknown]

NARRATIVE: CASE EVENT DATE: 20221226
